FAERS Safety Report 8382306 (Version 2)
Quarter: 2013Q2

REPORT INFORMATION
  Report Type: Spontaneous
  Country: US (occurrence: None)
  Receive Date: 20111221
  Receipt Date: 20121227
  Transmission Date: 20140414
  Serious: Yes (Hospitalization)
  Sender: FDA-Public Use
  Company Number: PHHY2011US07427

PATIENT
  Age: 61 Year
  Sex: Female
  Weight: 76.8 kg

DRUGS (1)
  1. EXJADE [Suspect]
     Indication: IRON OVERLOAD
     Dosage: 1500 MG, DAILY, ORAL
     Route: 048
     Dates: start: 20060809

REACTIONS (4)
  - NEPHROPATHY [None]
  - DIALYSIS [None]
  - Sickle cell anaemia with crisis [None]
  - Pain [None]
